FAERS Safety Report 9879995 (Version 3)
Quarter: 2014Q2

REPORT INFORMATION
  Report Type: Report from Study
  Country: US (occurrence: US)
  Receive Date: 20140207
  Receipt Date: 20140617
  Transmission Date: 20141212
  Serious: Yes (Hospitalization, Other)
  Sender: FDA-Public Use
  Company Number: US-ABBVIE-13P-163-1142417-00

PATIENT
  Sex: Female

DRUGS (2)
  1. CREON [Suspect]
     Indication: PANCREATIC INSUFFICIENCY
  2. ENZYMES [Concomitant]
     Indication: MALABSORPTION

REACTIONS (10)
  - Cystic fibrosis [Unknown]
  - Abdominal pain upper [Unknown]
  - Cough [Recovered/Resolved]
  - Dyspnoea [Recovered/Resolved]
  - Mobility decreased [Unknown]
  - Pain [Unknown]
  - Agitation [Unknown]
  - Frustration [Unknown]
  - Decubitus ulcer [Unknown]
  - Confusional state [Unknown]
